FAERS Safety Report 9074372 (Version 1)
Quarter: 2013Q1

REPORT INFORMATION
  Report Type: Report from Study
  Country: FR (occurrence: FR)
  Receive Date: 20130129
  Receipt Date: 20130129
  Transmission Date: 20140127
  Serious: Yes (Other)
  Sender: FDA-Public Use
  Company Number: FR-SANOFI-AVENTIS-2013SA007355

PATIENT
  Sex: Male

DRUGS (3)
  1. DOCETAXEL [Suspect]
     Indication: PROSTATE CANCER
     Dosage: IN A 250 CUBIC CM TUBE OF 5 % GLUCOSE SOLTIONON IN THE COURSE OF ONE HOUR ON DAY 1 OF CYCLE
     Route: 042
  2. HORMONE ANTAGONISTS AND RELATED AGENTS [Suspect]
     Indication: PROSTATE CANCER
     Route: 065
  3. CORTICOSTEROID NOS [Concomitant]
     Indication: PREMEDICATION
     Dosage: IN THE EVENING  BEFORE THE INFUSION OF DOCETAXEL, ON DAY OF DOCETAXEL, AND ON NEXT DAY.
     Route: 048

REACTIONS (1)
  - Neutropenia [Unknown]
